FAERS Safety Report 15895328 (Version 1)
Quarter: 2019Q1

REPORT INFORMATION
  Report Type: Spontaneous
  Country: US (occurrence: US)
  Receive Date: 20190131
  Receipt Date: 20190131
  Transmission Date: 20190417
  Serious: Yes (Disabling)
  Sender: FDA-Public Use
  Company Number: None

PATIENT
  Age: 43 Year
  Sex: Female
  Weight: 85.05 kg

DRUGS (1)
  1. TAMOXIFEN 20MG [Suspect]
     Active Substance: TAMOXIFEN
     Indication: BREAST CANCER
     Dosage: ?          QUANTITY:1 TABLET(S);?
     Route: 048
     Dates: start: 20180717

REACTIONS (4)
  - Drug interaction [None]
  - Deafness [None]
  - Migraine [None]
  - Tinnitus [None]

NARRATIVE: CASE EVENT DATE: 20180825
